FAERS Safety Report 6437495-8 (Version None)
Quarter: 2009Q4

REPORT INFORMATION
  Report Type: 
  Country: None (occurrence: None)
  Receive Date: 20091112
  Receipt Date: 20091102
  Transmission Date: 20100525
  Serious: Yes (Hospitalization, Other)
  Sender: FDA-Public Use
  Company Number: US-ELI_LILLY_AND_COMPANY-US200908004726

PATIENT
  Age: 56 Year
  Sex: Female

DRUGS (14)
  1. CYMBALTA [Suspect]
     Dosage: 120 MG, DAILY (1/D)
     Route: 065
     Dates: start: 20080101, end: 20090610
  2. ZANTAC [Concomitant]
     Dosage: 150 MG, UNKNOWN
     Route: 065
  3. VALIUM [Concomitant]
     Dosage: 5 MG, 3/D
     Route: 065
  4. OXYCODONE HCL [Concomitant]
     Dosage: 30 MG, OTHER
     Route: 065
  5. OXYCODONE HCL [Concomitant]
     Dosage: 80 MG, EVERY 8 HRS
  6. PHRENILIN [Concomitant]
     Dosage: UNK, AS NEEDED
     Route: 065
  7. MECLIZINE [Concomitant]
     Dosage: 1 D/F, UNK
  8. PHENOL AND ZINC OXIDE [Concomitant]
     Dosage: 1 D/F, UNK
  9. PAMELOR [Concomitant]
     Dosage: 1 D/F, UNK
  10. TOBRAMYCIN [Concomitant]
     Indication: EYE INFECTION
     Dosage: 1 D/F, UNK
  11. ERYTHROMYCIN OPTHALMIC OINTMENT USP 23 [Concomitant]
     Indication: EYE INFECTION
     Dosage: 1 D/F, UNK
  12. OPIOIDS [Concomitant]
     Indication: PAIN
     Dosage: 1 D/F, UNK
  13. ACETAMINOPHEN [Concomitant]
     Dosage: 1 D/F, UNK
  14. CANNABIS [Concomitant]
     Indication: PAIN
     Dosage: 1 D/F, UNK

REACTIONS (4)
  - ASTHENIA [None]
  - ENCEPHALOPATHY [None]
  - HEPATIC FAILURE [None]
  - UNRESPONSIVE TO STIMULI [None]
